FAERS Safety Report 20186833 (Version 1)
Quarter: 2021Q4

REPORT INFORMATION
  Report Type: Spontaneous
  Country: US (occurrence: US)
  Receive Date: 20211215
  Receipt Date: 20211215
  Transmission Date: 20220303
  Serious: Yes (Hospitalization, Other)
  Sender: FDA-Public Use
  Company Number: US-BRISTOL-MYERS SQUIBB COMPANY-BMS-2021-134205

PATIENT
  Age: 89 Year
  Sex: Female
  Weight: 72.562 kg

DRUGS (1)
  1. ELIQUIS [Suspect]
     Active Substance: APIXABAN
     Indication: Cardiac failure congestive
     Dosage: 5 MILLIGRAM, BID
     Route: 048

REACTIONS (2)
  - Pulmonary congestion [Unknown]
  - Product use in unapproved indication [Unknown]
